FAERS Safety Report 4696776-9 (Version None)
Quarter: 2005Q2

REPORT INFORMATION
  Report Type: 
  Country: None (occurrence: None)
  Receive Date: 20050622
  Receipt Date: 20050523
  Transmission Date: 20051028
  Serious: Yes (Hospitalization)
  Sender: FDA-Public Use
  Company Number: PHNU2005DE02030

PATIENT
  Sex: Female

DRUGS (1)
  1. AREDIA [Suspect]
     Indication: BONE MARROW OEDEMA
     Dosage: 15 MG, QW
     Dates: start: 20041201

REACTIONS (10)
  - ALOPECIA [None]
  - DIFFICULTY IN WALKING [None]
  - DRUG INTOLERANCE [None]
  - HAEMORRHAGE [None]
  - MEDICATION ERROR [None]
  - MUSCLE DISORDER [None]
  - OEDEMA PERIPHERAL [None]
  - SKIN DISCOLOURATION [None]
  - SKIN DISCOMFORT [None]
  - SOFT TISSUE INFLAMMATION [None]
